FAERS Safety Report 6254276-9 (Version None)
Quarter: 2009Q2

REPORT INFORMATION
  Report Type: 
  Country: None (occurrence: None)
  Receive Date: 20090630
  Receipt Date: 20090630
  Transmission Date: 20091009
  Serious: Yes (Other)
  Sender: FDA-Public Use
  Company Number: None

PATIENT
  Age: 80 Year
  Sex: Female
  Weight: 43.0917 kg

DRUGS (2)
  1. LEVAQUIN [Suspect]
     Indication: ANTIBIOTIC THERAPY
     Dosage: UNAVAILABLE ONCE PER DAY PO
     Route: 048
     Dates: start: 20090127, end: 20090202
  2. LEVAQUIN [Suspect]
     Indication: POSTOPERATIVE CARE
     Dosage: UNAVAILABLE ONCE PER DAY PO
     Route: 048
     Dates: start: 20090127, end: 20090202

REACTIONS (6)
  - ANXIETY [None]
  - DIZZINESS [None]
  - NERVOUS SYSTEM DISORDER [None]
  - PARAESTHESIA [None]
  - RESTLESSNESS [None]
  - TENDONITIS [None]
